FAERS Safety Report 7373912-7 (Version None)
Quarter: 2011Q1

REPORT INFORMATION
  Report Type: 
  Country: None (occurrence: None)
  Receive Date: 20110325
  Receipt Date: 20110321
  Transmission Date: 20110831
  Serious: Yes (Death, Other)
  Sender: FDA-Public Use
  Company Number: US-PFIZER INC-2009306630

PATIENT
  Sex: Male

DRUGS (2)
  1. CHANTIX [Suspect]
     Indication: SMOKING CESSATION THERAPY
     Dosage: FOR ABOUT TWO WEEKS, UNK
     Dates: start: 20070705
  2. ADDERALL 10 [Concomitant]
     Indication: ATTENTION DEFICIT/HYPERACTIVITY DISORDER
     Dosage: UNK
     Dates: start: 20060101, end: 20071201

REACTIONS (5)
  - COMPLETED SUICIDE [None]
  - IRRITABILITY [None]
  - MOOD ALTERED [None]
  - DEPRESSION [None]
  - AGGRESSION [None]
